FAERS Safety Report 16852131 (Version 1)
Quarter: 2019Q3

REPORT INFORMATION
  Report Type: Spontaneous
  Country: CA (occurrence: CA)
  Receive Date: 20190925
  Receipt Date: 20190925
  Transmission Date: 20191005
  Serious: Yes (Other)
  Sender: FDA-Public Use
  Company Number: CA-JNJFOC-20190923745

PATIENT
  Age: 72 Year
  Sex: Male

DRUGS (2)
  1. INVOKANA [Suspect]
     Active Substance: CANAGLIFLOZIN
     Indication: TYPE 2 DIABETES MELLITUS
     Route: 048
  2. INVOKANA [Suspect]
     Active Substance: CANAGLIFLOZIN
     Route: 048
     Dates: start: 201901

REACTIONS (9)
  - Pallor [Unknown]
  - Vomiting [Unknown]
  - Back pain [Unknown]
  - Asthenia [Unknown]
  - Liver injury [Unknown]
  - Insomnia [Unknown]
  - Dysgeusia [Unknown]
  - Renal pain [Unknown]
  - Pain [Unknown]
